FAERS Safety Report 10025074 (Version 3)
Quarter: 2014Q2

REPORT INFORMATION
  Report Type: Report from Study
  Country: JP (occurrence: JP)
  Receive Date: 20140320
  Receipt Date: 20140603
  Transmission Date: 20141212
  Serious: Yes (Hospitalization)
  Sender: FDA-Public Use
  Company Number: JP-ABBVIE-14P-087-1214394-00

PATIENT
  Age: 63 Year
  Sex: Male

DRUGS (6)
  1. LIPACREON GRANULES 300MG SACHET [Suspect]
     Indication: PANCREATIC INSUFFICIENCY
     Route: 048
     Dates: start: 20130717, end: 20130922
  2. PREDNISOLONE [Concomitant]
     Indication: AUTOIMMUNE PANCREATITIS
     Route: 048
  3. CAMOSTAT MESILATE [Concomitant]
     Indication: AUTOIMMUNE PANCREATITIS
     Route: 048
  4. RABEPRAZOLE SODIUM [Concomitant]
     Indication: GASTRIC ULCER
     Route: 048
     Dates: start: 20130807
  5. POLAPREZINC [Concomitant]
     Indication: DISEASE COMPLICATION
     Route: 048
  6. SODIUM PICOSULFATE [Concomitant]
     Indication: DISEASE COMPLICATION
     Route: 048

REACTIONS (2)
  - Autoimmune pancreatitis [Recovering/Resolving]
  - Gastric ulcer [Recovering/Resolving]
